FAERS Safety Report 8826793 (Version 1)
Quarter: 2012Q4

REPORT INFORMATION
  Report Type: 
  Country: US (occurrence: US)
  Receive Date: 20121005
  Receipt Date: 20121005
  Transmission Date: 20130627
  Serious: Yes (Hospitalization, Disabling, Other)
  Sender: FDA-Public Use
  Company Number: CHPA2012US019088

PATIENT
  Age: 69 Year
  Sex: Female

DRUGS (2)
  1. EXCEDRIN EXTRA STRENGTH [Suspect]
     Dosage: 1 DF, nightly
  2. EXCEDRIN EXTRA STRENGTH [Suspect]
     Indication: MYALGIA
     Dosage: 1 DF, at night every day
     Route: 048
     Dates: end: 20120924

REACTIONS (8)
  - Breast cancer [Unknown]
  - Lymphoedema [Unknown]
  - Poliomyelitis [Unknown]
  - Paraplegia [Unknown]
  - Wheelchair user [Unknown]
  - Feelings of worthlessness [Unknown]
  - Incorrect drug administration duration [Unknown]
  - Underdose [Unknown]
